FAERS Safety Report 21883738 (Version 3)
Quarter: 2023Q2

REPORT INFORMATION
  Report Type: Spontaneous
  Country: US (occurrence: US)
  Receive Date: 20230119
  Receipt Date: 20230410
  Transmission Date: 20230722
  Serious: No
  Sender: FDA-Public Use
  Company Number: US-LUPIN PHARMACEUTICALS INC.-2023-00201

PATIENT

DRUGS (2)
  1. QUINAPRIL [Suspect]
     Active Substance: QUINAPRIL
     Indication: Hypertension
     Dosage: 20 MG, QD (STARTED 25 YEARS AGO,)
     Route: 065
     Dates: end: 202212
  2. QUINAPRIL [Suspect]
     Active Substance: QUINAPRIL
     Indication: Product used for unknown indication
     Dosage: 0.5 DOSAGE FORM (HALF TABLET)
     Route: 065

REACTIONS (3)
  - Recalled product administered [Unknown]
  - Wrong technique in product usage process [Unknown]
  - No adverse event [Unknown]
